FAERS Safety Report 4310083-5 (Version None)
Quarter: 2004Q1

REPORT INFORMATION
  Report Type: 
  Country: None (occurrence: None)
  Receive Date: 20040301
  Receipt Date: 20040114
  Transmission Date: 20041129
  Serious: No
  Sender: FDA-Public Use
  Company Number: WAES 0401USA02088

PATIENT
  Sex: Female

DRUGS (12)
  1. ZETIA [Suspect]
     Dosage: PO
     Route: 048
     Dates: start: 20031101
  2. CELEBREX [Concomitant]
  3. DIOVAN [Concomitant]
  4. IMDUR [Concomitant]
  5. LASIX [Concomitant]
  6. NITRO-BID [Concomitant]
  7. PREVACID [Concomitant]
  8. PROZAC [Concomitant]
  9. SYNTHROID [Concomitant]
  10. AMOXICILLIN [Concomitant]
  11. ASPIRIN [Concomitant]
  12. SPIRONOLACTONE [Concomitant]

REACTIONS (2)
  - ABDOMINAL PAIN [None]
  - DIARRHOEA [None]
